FAERS Safety Report 19265678 (Version 1)
Quarter: 2021Q2

REPORT INFORMATION
  Report Type: Spontaneous
  Country: CA (occurrence: CA)
  Receive Date: 20210517
  Receipt Date: 20210517
  Transmission Date: 20210717
  Serious: Yes (Disabling, Other)
  Sender: FDA-Public Use
  Company Number: CA-CELGENEUS-CAN-20210503022

PATIENT
  Age: 58 Year
  Sex: Male
  Weight: 78 kg

DRUGS (2)
  1. LENALIDOMIDE [Suspect]
     Active Substance: LENALIDOMIDE
     Indication: PLASMA CELL MYELOMA
     Route: 048
  2. DECADRON [Suspect]
     Active Substance: DEXAMETHASONE
     Indication: PLASMA CELL MYELOMA
     Route: 048

REACTIONS (4)
  - Polydipsia [Recovered/Resolved]
  - Hyperglycaemia [Recovered/Resolved]
  - Polyuria [Recovered/Resolved]
  - Abnormal loss of weight [Recovered/Resolved]
